FAERS Safety Report 9613376 (Version 1)
Quarter: 2013Q4

REPORT INFORMATION
  Report Type: Spontaneous
  Country: GB (occurrence: None)
  Receive Date: 20131008
  Receipt Date: 20131008
  Transmission Date: 20140711
  Serious: Yes (Life-Threatening, Hospitalization)
  Sender: FDA-Public Use
  Company Number: FK201304066

PATIENT
  Age: 24 Year
  Sex: Female

DRUGS (1)
  1. PROPOFOL [Suspect]
     Indication: INDUCTION OF ANAESTHESIA
     Dosage: 1 IN 1 TOTAL, INTRAVENOUS (NOT OTHERWISE SPECIFIED)
     Route: 042
     Dates: start: 20130730, end: 20130730

REACTIONS (2)
  - Cardiac arrest [None]
  - Convulsion [None]
